FAERS Safety Report 9422730 (Version 1)
Quarter: 2013Q3

REPORT INFORMATION
  Report Type: Spontaneous
  Country: US (occurrence: None)
  Receive Date: 20130724
  Receipt Date: 20130724
  Transmission Date: 20140515
  Serious: Yes (Other)
  Sender: FDA-Public Use
  Company Number: US-2013-2122

PATIENT
  Sex: 0

DRUGS (2)
  1. VINORELBINE [Suspect]
     Indication: BREAST CANCER METASTATIC
     Dosage: 25MG/M2, WEEKLY EVERY 4W
  2. TRASTUZUMAB [Suspect]
     Indication: BREAST CANCER METASTATIC

REACTIONS (4)
  - Ejection fraction decreased [None]
  - Fatigue [None]
  - Dyspnoea exertional [None]
  - Toxicity to various agents [None]
